FAERS Safety Report 7302435-6 (Version None)
Quarter: 2011Q1

REPORT INFORMATION
  Report Type: 
  Country: None (occurrence: None)
  Receive Date: 20110218
  Receipt Date: 20100226
  Transmission Date: 20110831
  Serious: No
  Sender: FDA-Public Use
  Company Number: US-ASTRAZENECA-2010SE08619

PATIENT
  Age: 26553 Day
  Sex: Male
  Weight: 63 kg

DRUGS (6)
  1. PLENDIL [Suspect]
     Route: 048
     Dates: start: 20100209
  2. CARDURA [Concomitant]
  3. PRILOSEC [Concomitant]
  4. ASACOL [Concomitant]
  5. FOSAMAX [Concomitant]
  6. PLENDIL [Suspect]
     Indication: HYPERTENSION
     Route: 048
     Dates: start: 19950101, end: 20100209

REACTIONS (1)
  - HYPERTENSION [None]
